FAERS Safety Report 10070805 (Version 1)
Quarter: 2014Q2

REPORT INFORMATION
  Report Type: Spontaneous
  Country: US (occurrence: None)
  Receive Date: 20140408
  Receipt Date: 20140408
  Transmission Date: 20141212
  Serious: Yes (Life-Threatening, Other)
  Sender: FDA-Public Use
  Company Number: 001704436A

PATIENT
  Age: 27 Year
  Sex: Female

DRUGS (5)
  1. PROACTIV + SKIN SMOOTHING EXFOLIATOR [Suspect]
     Indication: ACNE
     Dosage: TWICE DAILY DERMAL
     Dates: start: 20140316, end: 20140317
  2. PROACTIV + PORE TARGETIING TREATMENT [Suspect]
     Indication: ACNE
     Dates: start: 20140316, end: 20140317
  3. PROACTIV +COMPLEXION PERFECTING HYDRATOR [Suspect]
     Indication: ACNE
     Dosage: TWICE DAILY DERMAL
     Dates: start: 20140316, end: 20140317
  4. DULERA INHALER [Concomitant]
  5. CLARITIN [Concomitant]

REACTIONS (6)
  - Burning sensation [None]
  - Erythema [None]
  - Eye swelling [None]
  - Pharyngeal oedema [None]
  - Local swelling [None]
  - Swelling face [None]
